FAERS Safety Report 8845602 (Version 1)
Quarter: 2012Q4

REPORT INFORMATION
  Report Type: 
  Country: US (occurrence: US)
  Receive Date: 20121017
  Receipt Date: 20121017
  Transmission Date: 20130627
  Serious: No
  Sender: FDA-Public Use
  Company Number: US-ASTRAZENECA-2012SE76851

PATIENT
  Sex: Female

DRUGS (1)
  1. SYMBICORT PMDI [Suspect]
     Dosage: FREQUENCY UNKNOWN
     Route: 055

REACTIONS (2)
  - General physical health deterioration [Unknown]
  - Drug dose omission [Unknown]
